FAERS Safety Report 14986159 (Version 2)
Quarter: 2018Q3

REPORT INFORMATION
  Report Type: Not Available
  Country: US (occurrence: US)
  Receive Date: 20180607
  Receipt Date: 20180719
  Transmission Date: 20181010
  Serious: No
  Sender: FDA-Public Use
  Company Number: US-NEUROCRINE BIOSCIENCES INC.-2018NBI01589

PATIENT
  Age: 16 Year
  Sex: Male

DRUGS (5)
  1. INGREZZA [Suspect]
     Active Substance: VALBENAZINE
     Indication: TARDIVE DYSKINESIA
     Route: 048
     Dates: start: 20180414, end: 20180502
  2. KLONOPIN [Concomitant]
     Active Substance: CLONAZEPAM
     Dosage: PER G TUBE
     Dates: start: 20140826
  3. CLONIDINE. [Concomitant]
     Active Substance: CLONIDINE
     Dosage: PER G TUBE
     Dates: start: 20121207
  4. BUSPAR [Concomitant]
     Active Substance: BUSPIRONE HYDROCHLORIDE
     Indication: ANXIETY
     Dosage: PER G TUBE
     Dates: start: 20160521
  5. BUSPAR [Concomitant]
     Active Substance: BUSPIRONE HYDROCHLORIDE
     Indication: AGITATION

REACTIONS (2)
  - Rash generalised [Recovered/Resolved]
  - Off label use [Recovered/Resolved]

NARRATIVE: CASE EVENT DATE: 201805
